FAERS Safety Report 6516149-3 (Version None)
Quarter: 2009Q4

REPORT INFORMATION
  Report Type: 
  Country: None (occurrence: None)
  Receive Date: 20091223
  Receipt Date: 20091215
  Transmission Date: 20100525
  Serious: Yes (Hospitalization, Other)
  Sender: FDA-Public Use
  Company Number: JP-JNJFOC-20090500305

PATIENT
  Sex: Female
  Weight: 48 kg

DRUGS (14)
  1. FENTANYL-100 [Suspect]
     Indication: PAIN
     Route: 062
     Dates: start: 20090303
  2. FENTANYL-100 [Suspect]
     Route: 062
     Dates: start: 20090303
  3. FENTANYL-100 [Suspect]
     Route: 062
     Dates: start: 20090303
  4. FENTANYL-100 [Suspect]
     Route: 062
     Dates: start: 20090303
  5. FENTANYL-100 [Suspect]
     Route: 062
     Dates: start: 20090303
  6. FENTANYL-100 [Suspect]
     Route: 062
     Dates: start: 20090303
  7. FENTANYL-100 [Suspect]
     Route: 062
     Dates: start: 20090303
  8. FENTANYL-100 [Suspect]
     Route: 062
     Dates: start: 20090303
  9. ZOLOFT [Concomitant]
     Indication: PAIN
     Route: 048
     Dates: start: 20090122
  10. NOVAMIN [Concomitant]
     Indication: VOMITING
     Route: 048
     Dates: start: 20090303
  11. NOVAMIN [Concomitant]
     Indication: NAUSEA
     Route: 048
     Dates: start: 20090303
  12. MORPHINE DERIVATIVES AND PREPARATIONS [Concomitant]
     Indication: BREAKTHROUGH PAIN
     Route: 048
     Dates: start: 20090423
  13. DAONIL [Concomitant]
     Indication: DIABETES MELLITUS
     Route: 048
  14. GABAPEN [Concomitant]
     Indication: PAIN
     Route: 048

REACTIONS (1)
  - SPINAL COMPRESSION FRACTURE [None]
